FAERS Safety Report 6412138-8 (Version None)
Quarter: 2009Q4

REPORT INFORMATION
  Report Type: 
  Country: None (occurrence: None)
  Receive Date: 20091023
  Receipt Date: 20091019
  Transmission Date: 20100525
  Serious: Yes (Other)
  Sender: FDA-Public Use
  Company Number: A0653778A

PATIENT
  Age: 32 Year
  Sex: Male

DRUGS (2)
  1. PAXIL [Suspect]
     Indication: ANXIETY
  2. LUVOX [Concomitant]
     Indication: PANIC REACTION
     Route: 065

REACTIONS (17)
  - ADVERSE DRUG REACTION [None]
  - BRAIN INJURY [None]
  - CONFUSIONAL STATE [None]
  - DISABILITY [None]
  - DISORIENTATION [None]
  - DIZZINESS [None]
  - FEELING ABNORMAL [None]
  - HEAD DISCOMFORT [None]
  - HEADACHE [None]
  - INSOMNIA [None]
  - MALAISE [None]
  - PAIN [None]
  - PARAESTHESIA [None]
  - TENSION [None]
  - TENSION HEADACHE [None]
  - TINNITUS [None]
  - WITHDRAWAL SYNDROME [None]
